FAERS Safety Report 13084629 (Version 1)
Quarter: 2017Q1

REPORT INFORMATION
  Report Type: Spontaneous
  Country: FR (occurrence: FR)
  Receive Date: 20170104
  Receipt Date: 20170104
  Transmission Date: 20170428
  Serious: Yes (Hospitalization, Congenital Anomaly)
  Sender: FDA-Public Use
  Company Number: FR-PFIZER INC-2016600107

PATIENT
  Age: 3 Week
  Sex: Male

DRUGS (8)
  1. ACTISKENAN [Suspect]
     Active Substance: MORPHINE SULFATE
     Indication: SCIATICA
  2. MYOLASTAN [Suspect]
     Active Substance: TETRAZEPAM
     Indication: SCIATICA
  3. NEURONTIN [Suspect]
     Active Substance: GABAPENTIN
     Indication: INTERVERTEBRAL DISC PROTRUSION
     Dosage: 2.4 G, DAILY
     Route: 064
  4. NEURONTIN [Suspect]
     Active Substance: GABAPENTIN
     Indication: SCIATICA
  5. DOLIPRANE [Suspect]
     Active Substance: ACETAMINOPHEN
     Indication: INTERVERTEBRAL DISC PROTRUSION
     Dosage: 4 G, DAILY
     Route: 064
  6. MYOLASTAN [Suspect]
     Active Substance: TETRAZEPAM
     Indication: INTERVERTEBRAL DISC PROTRUSION
     Dosage: 0.5 DF, 3X/DAY
     Route: 064
  7. DOLIPRANE [Suspect]
     Active Substance: ACETAMINOPHEN
     Indication: SCIATICA
  8. ACTISKENAN [Suspect]
     Active Substance: MORPHINE SULFATE
     Indication: INTERVERTEBRAL DISC PROTRUSION
     Dosage: 20 MG, 3X/DAY
     Route: 064

REACTIONS (3)
  - Pyloric stenosis [Recovered/Resolved]
  - Maternal exposure during pregnancy [Unknown]
  - Vomiting [Recovered/Resolved]

NARRATIVE: CASE EVENT DATE: 20061231
